FAERS Safety Report 14347857 (Version 2)
Quarter: 2018Q1

REPORT INFORMATION
  Report Type: Spontaneous
  Country: GB (occurrence: GB)
  Receive Date: 20180103
  Receipt Date: 20180110
  Transmission Date: 20180509
  Serious: Yes (Other)
  Sender: FDA-Public Use
  Company Number: GB-MYLANLABS-2018M1000151

PATIENT
  Age: 25 Year
  Sex: Female

DRUGS (6)
  1. MORPHINE [Suspect]
     Active Substance: MORPHINE
     Dosage: UNK
     Route: 065
  2. MORPHINE [Suspect]
     Active Substance: MORPHINE
     Dosage: UNK
     Route: 065
  3. MORPHINE [Suspect]
     Active Substance: MORPHINE
     Indication: DRUG PROVOCATION TEST
     Dosage: UNK
     Route: 065
  4. MORPHINE [Suspect]
     Active Substance: MORPHINE
     Indication: ANAESTHESIA
     Dosage: UNK
     Route: 065
  5. ORAMORPH [Suspect]
     Active Substance: MORPHINE SULFATE
     Indication: ANAESTHESIA
  6. ORAMORPH [Suspect]
     Active Substance: MORPHINE SULFATE
     Indication: DRUG PROVOCATION TEST
     Route: 048

REACTIONS (4)
  - Drug hypersensitivity [Unknown]
  - Bronchospasm [Unknown]
  - Urticaria [Unknown]
  - Angioedema [Unknown]
